FAERS Safety Report 7457736-8 (Version None)
Quarter: 2011Q2

REPORT INFORMATION
  Report Type: 
  Country: None (occurrence: None)
  Receive Date: 20110504
  Receipt Date: 20110428
  Transmission Date: 20111010
  Serious: Yes (Other)
  Sender: FDA-Public Use
  Company Number: FR-ROCHE-774409

PATIENT
  Age: 16 Year
  Sex: Female

DRUGS (2)
  1. ALDACTONE [Concomitant]
  2. ACCUTANE [Suspect]
     Route: 065

REACTIONS (2)
  - SUICIDAL IDEATION [None]
  - ABNORMAL BEHAVIOUR [None]
